FAERS Safety Report 9151766 (Version 1)
Quarter: 2013Q1

REPORT INFORMATION
  Report Type: Spontaneous
  Country: US (occurrence: US)
  Receive Date: 20130308
  Receipt Date: 20130308
  Transmission Date: 20140127
  Serious: Yes (Death, Hospitalization)
  Sender: FDA-Public Use
  Company Number: US-GLAXOSMITHKLINE-A0898739A

PATIENT
  Age: 78 Year
  Sex: Male
  Weight: 79.1 kg

DRUGS (1)
  1. AVANDIA [Suspect]
     Indication: DIABETES MELLITUS
     Route: 048
     Dates: start: 1999, end: 2007

REACTIONS (5)
  - Cerebrovascular accident [Unknown]
  - Hepatocellular carcinoma [Fatal]
  - Chest pain [Unknown]
  - Eye injury [Unknown]
  - Hypertension [Unknown]
